FAERS Safety Report 4377214-2 (Version None)
Quarter: 2004Q2

REPORT INFORMATION
  Report Type: 
  Country: None (occurrence: None)
  Receive Date: 20040609
  Receipt Date: 20040217
  Transmission Date: 20050107
  Serious: No
  Sender: FDA-Public Use
  Company Number: 2004199789US

PATIENT
  Age: 79 Year
  Sex: Female

DRUGS (4)
  1. BEXTRA [Suspect]
     Indication: MUSCLE STRAIN
     Dosage: 10 MG, QD
     Dates: start: 20040213, end: 20040216
  2. ASPIRIN [Concomitant]
  3. LIPITOR [Concomitant]
  4. NORVASC [Concomitant]

REACTIONS (1)
  - MUSCLE CRAMP [None]
